FAERS Safety Report 13522799 (Version 3)
Quarter: 2018Q2

REPORT INFORMATION
  Report Type: Report from Study
  Country: IT (occurrence: IT)
  Receive Date: 20170508
  Receipt Date: 20180518
  Transmission Date: 20180711
  Serious: Yes (Other)
  Sender: FDA-Public Use
  Company Number: IT-TEVA-764813ACC

PATIENT
  Age: 52 Year
  Sex: Male

DRUGS (2)
  1. ACYCLOVIR. [Suspect]
     Active Substance: ACYCLOVIR
     Indication: HERPES ZOSTER
     Route: 048
  2. AUGMENTIN [Suspect]
     Active Substance: AMOXICILLIN\CLAVULANATE POTASSIUM
     Route: 048

REACTIONS (4)
  - Hypersensitivity [Unknown]
  - Hypotension [Unknown]
  - Hyperhidrosis [Unknown]
  - Erythema [Unknown]

NARRATIVE: CASE EVENT DATE: 20170414
